FAERS Safety Report 16408403 (Version 2)
Quarter: 2019Q3

REPORT INFORMATION
  Report Type: Report from Study
  Country: None (occurrence: AR)
  Receive Date: 20190610
  Receipt Date: 20190719
  Transmission Date: 20191004
  Serious: Yes (Other)
  Sender: FDA-Public Use
  Company Number: AR-ABBVIE-19K-007-2813230-00

PATIENT
  Sex: Female

DRUGS (2)
  1. HUMIRA [Suspect]
     Active Substance: ADALIMUMAB
     Indication: RHEUMATOID ARTHRITIS
     Route: 058
     Dates: start: 20170822
  2. HUMIRA [Suspect]
     Active Substance: ADALIMUMAB
     Route: 058

REACTIONS (6)
  - Haemorrhoids [Unknown]
  - Anal haemorrhage [Recovered/Resolved]
  - Gastrointestinal injury [Not Recovered/Not Resolved]
  - Dyschezia [Unknown]
  - Anal injury [Not Recovered/Not Resolved]
  - Anorectal disorder [Unknown]

NARRATIVE: CASE EVENT DATE: 2018
